FAERS Safety Report 5465540-5 (Version None)
Quarter: 2007Q3

REPORT INFORMATION
  Report Type: 
  Country: None (occurrence: None)
  Receive Date: 20070924
  Receipt Date: 19970820
  Transmission Date: 20080115
  Serious: Yes (Hospitalization)
  Sender: FDA-Public Use
  Company Number: DE-PFIZER INC-2006118894

PATIENT
  Sex: Male

DRUGS (3)
  1. IRINOTECAN HCL [Suspect]
     Indication: COLON CANCER METASTATIC
     Dosage: DAILY DOSE:350MG/M2-FREQ:EVERY 3 WEEKS
     Route: 042
     Dates: start: 19970131, end: 19970131
  2. IRINOTECAN HCL [Suspect]
     Dosage: DAILY DOSE:350MG/M2-FREQ:EVERY 3 WEEKS
     Route: 042
     Dates: start: 19970725, end: 19970725
  3. ECHINACIN [Concomitant]
     Dosage: DAILY DOSE:90DROP
     Route: 048

REACTIONS (6)
  - ABDOMINAL PAIN [None]
  - BLOOD BILIRUBIN INCREASED [None]
  - C-REACTIVE PROTEIN INCREASED [None]
  - DIARRHOEA [None]
  - NEUTROPENIA [None]
  - THROMBOCYTOPENIA [None]
